FAERS Safety Report 5611982-4 (Version None)
Quarter: 2008Q1

REPORT INFORMATION
  Report Type: 
  Country: None (occurrence: None)
  Receive Date: 20080129
  Receipt Date: 20080129
  Transmission Date: 20080703
  Serious: Yes (Other)
  Sender: FDA-Public Use
  Company Number: None

PATIENT
  Age: 41 Year
  Sex: Male
  Weight: 61.5 kg

DRUGS (3)
  1. HEPARIN [Suspect]
     Indication: HAEMODIALYSIS
     Dosage: 1000 UNITS ONE TIME HEMODIALYSIS X 1 DOSE
     Dates: start: 20080108
  2. HEPARIN [Suspect]
  3. HEPARIN [Suspect]

REACTIONS (7)
  - BLOOD PRESSURE DECREASED [None]
  - DIZZINESS [None]
  - DYSPNOEA [None]
  - HEADACHE [None]
  - LETHARGY [None]
  - MALAISE [None]
  - SKIN DISCOLOURATION [None]
